FAERS Safety Report 11101740 (Version 1)
Quarter: 2015Q2

REPORT INFORMATION
  Report Type: Spontaneous
  Country: US (occurrence: US)
  Receive Date: 20150508
  Receipt Date: 20150508
  Transmission Date: 20150821
  Serious: Yes (Hospitalization)
  Sender: FDA-Public Use
  Company Number: US-ENDO PHARMACEUTICALS INC.-201412076

PATIENT
  Age: 54 Year
  Sex: Male

DRUGS (1)
  1. TESTIM [Suspect]
     Active Substance: TESTOSTERONE
     Indication: BLOOD TESTOSTERONE DECREASED
     Route: 062
     Dates: start: 20110111, end: 20131115

REACTIONS (3)
  - Cellulitis [Unknown]
  - Acute myocardial infarction [Unknown]
  - Abscess [Unknown]

NARRATIVE: CASE EVENT DATE: 20110424
